FAERS Safety Report 15007415 (Version 1)
Quarter: 2018Q2

REPORT INFORMATION
  Report Type: Spontaneous
  Country: TR (occurrence: TR)
  Receive Date: 20180613
  Receipt Date: 20180613
  Transmission Date: 20180711
  Serious: Yes (Other)
  Sender: FDA-Public Use
  Company Number: TR-ANIPHARMA-2018-TR-000030

PATIENT
  Age: 32 Year
  Sex: Male

DRUGS (2)
  1. PROPRANOLOL EXTENDED RELEASE CAPSULES (NON-SPECIFIC) [Suspect]
     Active Substance: PROPRANOLOL HYDROCHLORIDE
     Dosage: 40 MG DAILY
  2. LITHIUM CARBONATE (NON-SPECIFIC) [Suspect]
     Active Substance: LITHIUM
     Dosage: 1200 MG DAILY
     Route: 048

REACTIONS (3)
  - Drug interaction [Unknown]
  - Tremor [Unknown]
  - Toxicity to various agents [Unknown]
